FAERS Safety Report 10098581 (Version 1)
Quarter: 2014Q2

REPORT INFORMATION
  Report Type: Spontaneous
  Country: US (occurrence: None)
  Receive Date: 20140422
  Receipt Date: 20140422
  Transmission Date: 20141212
  Serious: No
  Sender: FDA-Public Use
  Company Number: None

PATIENT
  Age: 80 Year
  Sex: Female

DRUGS (8)
  1. SF 5000 PLUS [Suspect]
     Indication: DENTAL CARIES
     Dosage: THIN RIBBON
     Route: 048
  2. SF 5000 PLUS [Suspect]
     Indication: PROPHYLAXIS
     Dosage: THIN RIBBON
     Route: 048
  3. CHLORHEXIDINE RINSE [Concomitant]
  4. OTC TOOTHPASTE [Concomitant]
  5. NIASTAN [Concomitant]
  6. PROLIA [Concomitant]
  7. VITAMIN D [Concomitant]
  8. MULTIVITAMIN [Concomitant]

REACTIONS (1)
  - Tooth discolouration [None]
